FAERS Safety Report 8024384-0 (Version None)
Quarter: 2012Q1

REPORT INFORMATION
  Report Type: 
  Country: None (occurrence: None)
  Receive Date: 20120105
  Receipt Date: 20120105
  Transmission Date: 20120608
  Serious: No
  Sender: FDA-Public Use
  Company Number: None

PATIENT
  Age: 55 Year
  Sex: Female
  Weight: 67.131 kg

DRUGS (3)
  1. HYDROCODONE 10/500 [Concomitant]
     Route: 048
  2. NSAIDS [Concomitant]
  3. CYMBALTA [Suspect]
     Indication: GENERALISED ANXIETY DISORDER
     Dates: start: 20010921, end: 20111216

REACTIONS (22)
  - FEAR [None]
  - VOMITING [None]
  - SUDDEN ONSET OF SLEEP [None]
  - HEADACHE [None]
  - NO THERAPEUTIC RESPONSE [None]
  - NERVE INJURY [None]
  - INFLUENZA LIKE ILLNESS [None]
  - PLANTAR FASCIITIS [None]
  - HYPOAESTHESIA [None]
  - PAIN IN EXTREMITY [None]
  - HOT FLUSH [None]
  - NERVE COMPRESSION [None]
  - ECONOMIC PROBLEM [None]
  - AMNESIA [None]
  - PNEUMONIA [None]
  - INSOMNIA [None]
  - EMOTIONAL POVERTY [None]
  - LIMB INJURY [None]
  - STRESS [None]
  - HYPERHIDROSIS [None]
  - CONFUSIONAL STATE [None]
  - DRUG WITHDRAWAL SYNDROME [None]
